FAERS Safety Report 10089737 (Version 4)
Quarter: 2014Q2

REPORT INFORMATION
  Report Type: Spontaneous
  Country: IT (occurrence: None)
  Receive Date: 20140417
  Receipt Date: 20140618
  Transmission Date: 20141212
  Serious: Yes (Hospitalization)
  Sender: FDA-Public Use
  Company Number: AUR-APL-2014-04618

PATIENT
  Age: 86 Year
  Sex: Male

DRUGS (4)
  1. ATENOLOLO [Suspect]
     Indication: HYPERTENSION
     Route: 048
     Dates: start: 20120101, end: 20140325
  2. APROVEL [Suspect]
     Indication: HYPERTENSION
     Route: 048
     Dates: start: 20120101, end: 20140325
  3. KEPPRA (LEVETIRACETAM) [Concomitant]
  4. PEPTAZOL (LANSOPRAZOLE) [Concomitant]

REACTIONS (2)
  - Syncope [None]
  - Orthostatic hypotension [None]
